FAERS Safety Report 7994157 (Version 4)
Quarter: 2013Q1

REPORT INFORMATION
  Report Type: Spontaneous
  Country: US (occurrence: US)
  Receive Date: 20110616
  Receipt Date: 20130218
  Transmission Date: 20140127
  Serious: Yes (Hospitalization, Other)
  Sender: FDA-Public Use
  Company Number: US-ASTRAZENECA-2010SE35924

PATIENT
  Age: 64 Year
  Sex: Female
  Weight: 68.9 kg

DRUGS (29)
  1. SEROQUEL [Suspect]
     Indication: DEPRESSION
     Route: 048
     Dates: start: 2003
  2. SEROQUEL [Suspect]
     Indication: ANXIETY
     Route: 048
     Dates: start: 2003
  3. SEROQUEL [Suspect]
     Indication: BIPOLAR DISORDER
     Route: 048
     Dates: start: 2003
  4. SEROQUEL [Suspect]
     Indication: DEPRESSION
     Route: 048
  5. SEROQUEL [Suspect]
     Indication: ANXIETY
     Route: 048
  6. SEROQUEL [Suspect]
     Indication: BIPOLAR DISORDER
     Route: 048
  7. SEROQUEL [Suspect]
     Indication: DEPRESSION
     Route: 048
  8. SEROQUEL [Suspect]
     Indication: ANXIETY
     Route: 048
  9. SEROQUEL [Suspect]
     Indication: BIPOLAR DISORDER
     Route: 048
  10. SEROQUEL [Suspect]
     Indication: DEPRESSION
     Route: 048
  11. SEROQUEL [Suspect]
     Indication: ANXIETY
     Route: 048
  12. SEROQUEL [Suspect]
     Indication: BIPOLAR DISORDER
     Route: 048
  13. SEROQUEL [Suspect]
     Indication: DEPRESSION
     Route: 048
  14. SEROQUEL [Suspect]
     Indication: ANXIETY
     Route: 048
  15. SEROQUEL [Suspect]
     Indication: BIPOLAR DISORDER
     Route: 048
  16. SEROQUEL [Suspect]
     Indication: DEPRESSION
     Route: 048
  17. SEROQUEL [Suspect]
     Indication: ANXIETY
     Route: 048
  18. SEROQUEL [Suspect]
     Indication: BIPOLAR DISORDER
     Route: 048
  19. BRILINTA [Suspect]
     Route: 048
  20. TOPAMAX [Concomitant]
     Indication: CONVULSION
     Route: 048
  21. LEVOXTHYROXIL [Concomitant]
     Indication: HYPOTHYROIDISM
     Dosage: DAILY
     Route: 048
     Dates: start: 2008
  22. LISINOPRIL [Concomitant]
     Indication: BLOOD PRESSURE ABNORMAL
     Route: 048
  23. OMEPRAZOLE [Concomitant]
  24. CLONAZEPAM [Concomitant]
  25. PROTONIX [Concomitant]
     Indication: ABDOMINAL DISCOMFORT
     Dosage: DAILY
     Route: 048
  26. FOLIC ACID [Concomitant]
  27. CELEXA [Concomitant]
     Indication: DEPRESSION
  28. RESTERIL [Concomitant]
     Indication: SLEEP DISORDER
  29. BABY ASPIRIN [Concomitant]

REACTIONS (23)
  - Brain neoplasm [Unknown]
  - Lower limb fracture [Unknown]
  - Ankle fracture [Unknown]
  - Apparent death [Unknown]
  - Renal failure [Unknown]
  - Pneumonia [Unknown]
  - Convulsion [Unknown]
  - Fall [Unknown]
  - Tongue biting [Unknown]
  - Anxiety [Unknown]
  - Insomnia [Unknown]
  - Contusion [Unknown]
  - Oral pain [Unknown]
  - Malaise [Unknown]
  - Nausea [Unknown]
  - Viral infection [Unknown]
  - Panic attack [Unknown]
  - Cardiac disorder [Unknown]
  - Drug withdrawal syndrome [Unknown]
  - Muscle twitching [Unknown]
  - Intentional drug misuse [Unknown]
  - Intentional drug misuse [Unknown]
  - Intentional drug misuse [Unknown]
